FAERS Safety Report 12178785 (Version 1)
Quarter: 2016Q1

REPORT INFORMATION
  Report Type: Other
  Country: AU (occurrence: AU)
  Receive Date: 20160315
  Receipt Date: 20160315
  Transmission Date: 20160526
  Serious: Yes (Other)
  Sender: FDA-Public Use
  Company Number: AU-JUBILANT GENERICS LIMITED-1049038

PATIENT
  Age: 70 Year
  Sex: Female

DRUGS (12)
  1. OESTRADIOL [Concomitant]
     Active Substance: ESTROGENS
  2. QUETIAPINE FUMARATE. [Concomitant]
     Active Substance: QUETIAPINE FUMARATE
  3. BUPROPION. [Suspect]
     Active Substance: BUPROPION
  4. DOTHIEPIN [Suspect]
     Active Substance: DOTHIEPIN\DOTHIEPIN HYDROCHLORIDE
  5. RAMIPRIL. [Suspect]
     Active Substance: RAMIPRIL
  6. LANTUS BRAND INSULIN [Concomitant]
  7. GLIPIZIDE. [Concomitant]
     Active Substance: GLIPIZIDE
  8. ATORVASTATIN CALCIUM. [Concomitant]
     Active Substance: ATORVASTATIN CALCIUM
  9. ESCITALOPRAM [Suspect]
     Active Substance: ESCITALOPRAM OXALATE
  10. LAMOTROGINE [Concomitant]
     Active Substance: LAMOTRIGINE
  11. METFORMIN [Concomitant]
     Active Substance: METFORMIN HYDROCHLORIDE
  12. ASPIRIN. [Concomitant]
     Active Substance: ASPIRIN

REACTIONS (3)
  - Inappropriate antidiuretic hormone secretion [Recovered/Resolved]
  - Hyponatraemia [Recovered/Resolved]
  - Drug interaction [Recovered/Resolved]

NARRATIVE: CASE EVENT DATE: 20160229
